FAERS Safety Report 6206161-6 (Version None)
Quarter: 2009Q2

REPORT INFORMATION
  Report Type: 
  Country: None (occurrence: None)
  Receive Date: 20090528
  Receipt Date: 20080807
  Transmission Date: 20091009
  Serious: No
  Sender: FDA-Public Use
  Company Number: US-KINGPHARMUSA00001-K200800928

PATIENT
  Sex: Female

DRUGS (6)
  1. AVINZA [Suspect]
     Indication: FIBROMYALGIA
     Dosage: 120 MG QAM + 60 MG QHS
     Route: 048
     Dates: start: 20070101, end: 20080801
  2. AVINZA [Suspect]
     Indication: INTERVERTEBRAL DISC PROTRUSION
     Dosage: 120 MG QAM + 60 MG QHS
     Route: 048
     Dates: start: 20080811
  3. AVINZA [Suspect]
     Indication: PAIN
  4. OXYCODONE HCL [Concomitant]
     Indication: PAIN
     Dosage: UNK, Q4H, AS NEEDED
  5. SOMA [Concomitant]
     Indication: MUSCLE SPASMS
     Dosage: UNK, QID
  6. CELEBREX [Concomitant]
     Indication: ANTIINFLAMMATORY THERAPY
     Dosage: UNK, BID

REACTIONS (7)
  - CRYING [None]
  - DIARRHOEA [None]
  - HYPERHIDROSIS [None]
  - INSOMNIA [None]
  - PAIN [None]
  - VOMITING [None]
  - WITHDRAWAL SYNDROME [None]
